FAERS Safety Report 18159543 (Version 1)
Quarter: 2020Q3

REPORT INFORMATION
  Report Type: Other
  Country: US (occurrence: US)
  Receive Date: 20200818
  Receipt Date: 20200818
  Transmission Date: 20201103
  Serious: Yes (Hospitalization)
  Sender: FDA-Public Use
  Company Number: US-WES PHARMA INC-2088719

PATIENT
  Sex: Male

DRUGS (3)
  1. NITROFURANTOIN. [Concomitant]
     Active Substance: NITROFURANTOIN
     Route: 065
  2. CEFTRIAXONE. [Concomitant]
     Active Substance: CEFTRIAXONE
     Route: 065
  3. METHYLPHENIDATE HYDROCHLORIDE. [Suspect]
     Active Substance: METHYLPHENIDATE HYDROCHLORIDE
     Indication: DEPRESSED LEVEL OF CONSCIOUSNESS
     Route: 065

REACTIONS (5)
  - Confusional state [Unknown]
  - Leukocytosis [Recovered/Resolved]
  - Eosinophilia [Recovered/Resolved]
  - Lethargy [Unknown]
  - Fatigue [Unknown]
